FAERS Safety Report 18793454 (Version 1)
Quarter: 2021Q1

REPORT INFORMATION
  Report Type: Spontaneous
  Country: US (occurrence: US)
  Receive Date: 20210127
  Receipt Date: 20210127
  Transmission Date: 20210419
  Serious: No
  Sender: FDA-Public Use
  Company Number: None

PATIENT
  Age: 64 Year
  Sex: Female
  Weight: 51.3 kg

DRUGS (10)
  1. CELLCEPT 250MG, 750MG, 1 G [Concomitant]
     Dates: start: 20201203
  2. LIDOCAINE PATCH [Concomitant]
     Active Substance: LIDOCAINE
     Dates: start: 20201203, end: 20201217
  3. PREDNISONE 20 MG [Concomitant]
     Active Substance: PREDNISONE
     Dates: start: 20201211, end: 20201225
  4. AMLODIPINE [Concomitant]
     Active Substance: AMLODIPINE BESYLATE
     Dates: start: 20201116, end: 20201229
  5. ACETAMINOPHEN 500 MG [Concomitant]
     Active Substance: ACETAMINOPHEN
     Dates: start: 20201202
  6. SULFAMETHOXAZOLE?TRIMETHOPRIM 800?160MG [Concomitant]
     Active Substance: SULFAMETHOXAZOLE\TRIMETHOPRIM
     Dates: start: 20201116, end: 20210114
  7. SODIUM BICARBONATE 650 MG [Concomitant]
     Dates: start: 20201210
  8. TACROLIMUS. [Suspect]
     Active Substance: TACROLIMUS
     Indication: IMMUNOSUPPRESSANT DRUG THERAPY
     Route: 048
     Dates: start: 20201202, end: 20201214
  9. FLUCONAZOLE 100 MG [Concomitant]
     Active Substance: FLUCONAZOLE
     Dates: start: 20201202, end: 20201229
  10. VALGANCICLOVIR 450 MG [Concomitant]
     Dates: start: 20201201, end: 20210112

REACTIONS (2)
  - Mental status changes [None]
  - Vision blurred [None]

NARRATIVE: CASE EVENT DATE: 20201212
